FAERS Safety Report 12366686 (Version 2)
Quarter: 2016Q2

REPORT INFORMATION
  Report Type: Spontaneous
  Country: GB (occurrence: GB)
  Receive Date: 20160513
  Receipt Date: 20160608
  Transmission Date: 20160815
  Serious: Yes (Other)
  Sender: FDA-Public Use
  Company Number: GB-BAXTER-2016BAX023821

PATIENT
  Age: 44 Year
  Sex: Female

DRUGS (6)
  1. APREPITANT. [Suspect]
     Active Substance: APREPITANT
     Indication: PRODUCT USED FOR UNKNOWN INDICATION
     Route: 048
  2. 5-FLUOROURACIL [Suspect]
     Active Substance: FLUOROURACIL
     Indication: CHEMOTHERAPY
     Route: 065
  3. PALONOSETRON HYDROCHLORIDE. [Suspect]
     Active Substance: PALONOSETRON HYDROCHLORIDE
     Indication: PRODUCT USED FOR UNKNOWN INDICATION
     Route: 065
  4. EPIRUBICIN [Suspect]
     Active Substance: EPIRUBICIN
     Indication: CHEMOTHERAPY
     Route: 065
  5. NEULASTA [Suspect]
     Active Substance: PEGFILGRASTIM
     Indication: PRODUCT USED FOR UNKNOWN INDICATION
     Route: 065
  6. CYCLOPHOSPHAMIDE INJECTION 1G [Suspect]
     Active Substance: CYCLOPHOSPHAMIDE
     Indication: CHEMOTHERAPY
     Route: 065

REACTIONS (15)
  - Dysgeusia [Unknown]
  - Procedural pain [Unknown]
  - Fatigue [Recovered/Resolved]
  - Haemorrhage [Unknown]
  - Pain of skin [Unknown]
  - Nausea [Recovered/Resolved]
  - Constipation [Unknown]
  - Myalgia [Unknown]
  - Mouth ulceration [Unknown]
  - Paraesthesia [Unknown]
  - Asthenia [Unknown]
  - Oral pain [Unknown]
  - Dysstasia [Unknown]
  - Productive cough [Unknown]
  - Alopecia [Unknown]

NARRATIVE: CASE EVENT DATE: 201603
